FAERS Safety Report 8979176 (Version 2)
Quarter: 2013Q1

REPORT INFORMATION
  Report Type: Spontaneous
  Country: US (occurrence: US)
  Receive Date: 20121221
  Receipt Date: 20130206
  Transmission Date: 20140127
  Serious: Yes (Death, Hospitalization, Other)
  Sender: FDA-Public Use
  Company Number: US-GLAXOSMITHKLINE-A1006254A

PATIENT
  Age: 50 Year
  Sex: Female
  Weight: 92.7 kg

DRUGS (8)
  1. ADVAIR [Suspect]
     Indication: PRODUCT USED FOR UNKNOWN INDICATION
     Route: 055
     Dates: start: 20110218, end: 20121209
  2. INSULIN [Concomitant]
     Route: 058
     Dates: start: 20120717, end: 20121024
  3. HUMALOG [Concomitant]
  4. LANTUS [Concomitant]
  5. PROVENTIL [Concomitant]
     Dosage: 2PUFF AS REQUIRED
  6. PREMPRO [Concomitant]
     Indication: HOT FLUSH
     Route: 048
  7. DIURETIC [Concomitant]
     Route: 048
  8. LEXAPRO [Concomitant]
     Route: 048

REACTIONS (1)
  - Hepatic failure [Fatal]
